FAERS Safety Report 8125757-8 (Version None)
Quarter: 2012Q1

REPORT INFORMATION
  Report Type: 
  Country: None (occurrence: None)
  Receive Date: 20120206
  Receipt Date: 20120130
  Transmission Date: 20120608
  Serious: Yes (Other)
  Sender: FDA-Public Use
  Company Number: 7109995

PATIENT
  Age: 76 Year
  Sex: Male

DRUGS (1)
  1. LEVOTHYROXINE SODIUM [Suspect]
     Indication: HYPOTHYROIDISM
     Dosage: 25 MCG ORAL
     Route: 048
     Dates: start: 20090801

REACTIONS (3)
  - TINNITUS [None]
  - BLOOD PRESSURE INCREASED [None]
  - PALPITATIONS [None]
